FAERS Safety Report 18033211 (Version 1)
Quarter: 2020Q3

REPORT INFORMATION
  Report Type: Spontaneous
  Country: US (occurrence: US)
  Receive Date: 20200716
  Receipt Date: 20200716
  Transmission Date: 20201103
  Serious: Yes (Death, Other)
  Sender: FDA-Public Use
  Company Number: US-PURDUE-USA-2020-0157380

PATIENT
  Sex: Female

DRUGS (3)
  1. OXYCODONE/ ACETAMINOPHEN TABLETS [Suspect]
     Active Substance: ACETAMINOPHEN\OXYCODONE HYDROCHLORIDE
     Indication: RHEUMATOID ARTHRITIS
     Dosage: 5/325 MG UNK
     Route: 048
     Dates: start: 20091016
  2. LIDODERM [Concomitant]
     Active Substance: LIDOCAINE
     Indication: PRODUCT USED FOR UNKNOWN INDICATION
     Dosage: 5 %, UNK
     Route: 062
  3. HYDROCODONE BITARTRATE AND ACETAMINOPHEN [Suspect]
     Active Substance: ACETAMINOPHEN\HYDROCODONE BITARTRATE
     Indication: RHEUMATOID ARTHRITIS
     Dosage: 5/500 MG, UNK
     Route: 048
     Dates: start: 20090316

REACTIONS (10)
  - Dyspnoea [Unknown]
  - Haematemesis [Unknown]
  - Anxiety disorder [Unknown]
  - Death [Fatal]
  - Depression [Unknown]
  - Drug dependence [Unknown]
  - Mental impairment [Unknown]
  - Fall [Unknown]
  - Overdose [Unknown]
  - Hypersomnia [Unknown]
